FAERS Safety Report 6867391-3 (Version None)
Quarter: 2010Q3

REPORT INFORMATION
  Report Type: 
  Country: None (occurrence: None)
  Receive Date: 20100722
  Receipt Date: 20100716
  Transmission Date: 20110219
  Serious: Yes (Hospitalization, Other)
  Sender: FDA-Public Use
  Company Number: FR-BRISTOL-MYERS SQUIBB COMPANY-15197692

PATIENT
  Age: 88 Year
  Sex: Female

DRUGS (9)
  1. ABILIFY [Suspect]
     Dates: end: 20100503
  2. CYMBALTA [Suspect]
     Dates: start: 20100428, end: 20100503
  3. TENSTATEN [Suspect]
     Dates: end: 20100503
  4. APROVEL [Concomitant]
  5. DAFALGAN [Concomitant]
  6. DAFALGAN CODEINE [Concomitant]
  7. EQUANIL [Concomitant]
     Dosage: DRUG STOPPED.
  8. ZOLPIDEM [Concomitant]
     Dosage: 1-2/D;DRUG STOPPED.
  9. CARTROL [Concomitant]
     Dosage: EYE DROPS.

REACTIONS (4)
  - FACIAL BONES FRACTURE [None]
  - FALL [None]
  - HYPONATRAEMIA [None]
  - INAPPROPRIATE ANTIDIURETIC HORMONE SECRETION [None]
